FAERS Safety Report 20602091 (Version 1)
Quarter: 2022Q1

REPORT INFORMATION
  Report Type: Spontaneous
  Country: US (occurrence: None)
  Receive Date: 20220315
  Receipt Date: 20220315
  Transmission Date: 20220423
  Serious: Yes (Disabling)
  Sender: FDA-Public Use
  Company Number: None

PATIENT
  Age: 64 Year
  Sex: Male
  Weight: 78.75 kg

DRUGS (17)
  1. METOPROLOL SUCCINATE [Suspect]
     Active Substance: METOPROLOL SUCCINATE
     Indication: Hypertension
     Dosage: OTHER QUANTITY : 90 TABLET(S);?FREQUENCY : DAILY;?
     Route: 048
  2. TRAMADOL [Concomitant]
     Active Substance: TRAMADOL
  3. HYDROCHLOROTHIAZIDE [Concomitant]
     Active Substance: HYDROCHLOROTHIAZIDE
  4. CLOPIDOGREL [Concomitant]
     Active Substance: CLOPIDOGREL BISULFATE
  5. TEMAZEPAM 15MG [Concomitant]
  6. ESZOPICLONE [Concomitant]
     Active Substance: ESZOPICLONE
  7. EZETIMIBE [Concomitant]
     Active Substance: EZETIMIBE
  8. ATORVASTATIN [Concomitant]
     Active Substance: ATORVASTATIN
  9. AMLODIPINE [Concomitant]
     Active Substance: AMLODIPINE BESYLATE
  10. ASPIRIN [Concomitant]
     Active Substance: ASPIRIN
  11. HYDROCODONE BITARTRATE AND ACETAMINOPHEN [Concomitant]
     Active Substance: ACETAMINOPHEN\HYDROCODONE BITARTRATE
  12. VITAMIN D3 [Concomitant]
  13. MELATONIN 20MG [Concomitant]
  14. DIPHENHYDANINE 50MG [Concomitant]
  15. VITAMIN B12 [Concomitant]
     Active Substance: CYANOCOBALAMIN
  16. OMEGA 3 1000MG [Concomitant]
  17. GLUCOSAMINE SULFATE 1000MG [Concomitant]

REACTIONS (2)
  - Vomiting [None]
  - Peripheral swelling [None]

NARRATIVE: CASE EVENT DATE: 20220201
